FAERS Safety Report 7635611-3 (Version None)
Quarter: 2011Q3

REPORT INFORMATION
  Report Type: 
  Country: None (occurrence: None)
  Receive Date: 20110726
  Receipt Date: 20110715
  Transmission Date: 20111222
  Serious: Yes (Other)
  Sender: FDA-Public Use
  Company Number: PHHY2011NL65250

PATIENT
  Sex: Female

DRUGS (5)
  1. TEMAZEPAM [Concomitant]
  2. SANDOSTATIN LAR [Suspect]
     Dosage: 30 MG, UNK
     Dates: start: 20110617
  3. SANDOSTATIN LAR [Suspect]
     Indication: NEUROENDOCRINE TUMOUR
     Dosage: UNK UKN, UNK
  4. SANDOSTATIN LAR [Suspect]
     Dosage: UNK UKN, UNK
     Dates: start: 20110715
  5. THYRAX [Concomitant]

REACTIONS (3)
  - FATIGUE [None]
  - DIARRHOEA [None]
  - DECREASED APPETITE [None]
